FAERS Safety Report 20777306 (Version 1)
Quarter: 2022Q2

REPORT INFORMATION
  Report Type: Spontaneous
  Country: GB (occurrence: GB)
  Receive Date: 20220503
  Receipt Date: 20220503
  Transmission Date: 20220721
  Serious: Yes (Hospitalization)
  Sender: FDA-Public Use
  Company Number: GB-MHRA-MED-202204261517407150-ZN2AP

PATIENT
  Age: 38 Year
  Sex: Female

DRUGS (1)
  1. PREGABALIN [Suspect]
     Active Substance: PREGABALIN
     Indication: Anxiety
     Dosage: 150MG TWICE A DAY; ;
     Dates: start: 20171212

REACTIONS (9)
  - Nausea [Not Recovered/Not Resolved]
  - Migraine [Not Recovered/Not Resolved]
  - Tension headache [Not Recovered/Not Resolved]
  - Amnesia [Not Recovered/Not Resolved]
  - Dizziness [Not Recovered/Not Resolved]
  - Syncope [Not Recovered/Not Resolved]
  - Poor quality sleep [Not Recovered/Not Resolved]
  - Somnolence [Not Recovered/Not Resolved]
  - Medication error [Unknown]

NARRATIVE: CASE EVENT DATE: 20180101
